FAERS Safety Report 21312182 (Version 1)
Quarter: 2022Q3

REPORT INFORMATION
  Report Type: Spontaneous
  Country: US (occurrence: None)
  Receive Date: 20220909
  Receipt Date: 20220909
  Transmission Date: 20221027
  Serious: No
  Sender: FDA-Public Use
  Company Number: US-ARIS GLOBAL-202204-0724

PATIENT
  Age: 79 Year
  Sex: Female

DRUGS (12)
  1. OXERVATE [Suspect]
     Active Substance: CENEGERMIN-BKBJ
     Indication: Neurotrophic keratopathy
     Route: 047
     Dates: start: 20220330
  2. METFORMIN HYDROCHLORIDE [Concomitant]
     Active Substance: METFORMIN HYDROCHLORIDE
  3. SIMVASTATIN [Concomitant]
     Active Substance: SIMVASTATIN
  4. DULOXETINE HYDROCHLORIDE [Concomitant]
     Active Substance: DULOXETINE HYDROCHLORIDE
  5. OMEPRAZOLE [Concomitant]
     Active Substance: OMEPRAZOLE
  6. OXYBUTYNIN CHLORIDE [Concomitant]
     Active Substance: OXYBUTYNIN CHLORIDE
  7. ASPIRIN [Concomitant]
     Active Substance: ASPIRIN
  8. VITAMIN D3-ALOE [Concomitant]
     Dosage: 120MG-1000
  9. LISINOPRIL [Concomitant]
     Active Substance: LISINOPRIL
  10. LANTUS [Concomitant]
     Active Substance: INSULIN GLARGINE
     Dosage: 100/ML VIAL
  11. IBUPROFEN [Concomitant]
     Active Substance: IBUPROFEN
  12. GLIMEPIRIDE [Concomitant]
     Active Substance: GLIMEPIRIDE

REACTIONS (1)
  - Laryngitis [Not Recovered/Not Resolved]

NARRATIVE: CASE EVENT DATE: 20220401
